FAERS Safety Report 4879833-3 (Version None)
Quarter: 2006Q1

REPORT INFORMATION
  Report Type: 
  Country: None (occurrence: None)
  Receive Date: 20060113
  Receipt Date: 20060106
  Transmission Date: 20060701
  Serious: Yes (Hospitalization)
  Sender: FDA-Public Use
  Company Number: CH-JNJFOC-20060101678

PATIENT
  Age: 102 Year
  Sex: Male

DRUGS (10)
  1. IMODIUM [Suspect]
     Indication: DIARRHOEA
     Route: 048
     Dates: start: 20051007, end: 20051009
  2. AUGMENTIN '125' [Suspect]
     Route: 048
     Dates: start: 20050930, end: 20051006
  3. AUGMENTIN '125' [Suspect]
     Dosage: AMOXICILLIN 500MG AND CLAVULANATE POTTASIUM 125MG
     Route: 048
     Dates: start: 20050930, end: 20051006
  4. PANTOZOL [Concomitant]
     Route: 048
  5. TOREM [Concomitant]
     Route: 048
  6. PROSCAR [Concomitant]
     Route: 048
  7. PRADIF [Concomitant]
     Route: 048
  8. SYMFONA N [Concomitant]
     Route: 048
  9. TEMESTA [Concomitant]
     Route: 048
  10. DISTRANEURIN [Concomitant]
     Route: 048

REACTIONS (3)
  - DEHYDRATION [None]
  - SOMNOLENCE [None]
  - SUBILEUS [None]
